FAERS Safety Report 7293707-2 (Version None)
Quarter: 2011Q1

REPORT INFORMATION
  Report Type: 
  Country: None (occurrence: None)
  Receive Date: 20110215
  Receipt Date: 20110207
  Transmission Date: 20110831
  Serious: Yes (Hospitalization)
  Sender: FDA-Public Use
  Company Number: B0699733A

PATIENT
  Sex: Female

DRUGS (1)
  1. AUGMENTIN '125' [Suspect]
     Dosage: 24ML PER DAY
     Route: 048
     Dates: start: 20101114, end: 20101116

REACTIONS (3)
  - DRUG ADMINISTRATION ERROR [None]
  - DIARRHOEA [None]
  - VOMITING [None]
